FAERS Safety Report 24366033 (Version 2)
Quarter: 2024Q4

REPORT INFORMATION
  Report Type: Spontaneous
  Country: US (occurrence: US)
  Receive Date: 20240926
  Receipt Date: 20241007
  Transmission Date: 20250115
  Serious: No
  Sender: PFIZER
  Company Number: US-PFIZER INC-202400262615

PATIENT
  Age: 81 Year
  Sex: Female

DRUGS (1)
  1. PAXLOVID [Suspect]
     Active Substance: NIRMATRELVIR\RITONAVIR
     Indication: COVID-19 treatment
     Dosage: UNK
     Dates: start: 20240829, end: 20240902

REACTIONS (2)
  - Therapeutic response unexpected [Unknown]
  - Energy increased [Unknown]

NARRATIVE: CASE EVENT DATE: 20240905
